FAERS Safety Report 15722224 (Version 1)
Quarter: 2018Q4

REPORT INFORMATION
  Report Type: Spontaneous
  Country: BR (occurrence: BR)
  Receive Date: 20181214
  Receipt Date: 20181214
  Transmission Date: 20190205
  Serious: Yes (Other)
  Sender: FDA-Public Use
  Company Number: BR-ABBVIE-18P-020-2496156-00

PATIENT
  Sex: Female

DRUGS (2)
  1. DEPAKOTE ER [Suspect]
     Active Substance: DIVALPROEX SODIUM
     Indication: MYOCLONIC EPILEPSY
     Route: 065
     Dates: end: 201808
  2. VITAMIN D [Concomitant]
     Active Substance: CHOLECALCIFEROL
     Indication: PRODUCT USED FOR UNKNOWN INDICATION

REACTIONS (12)
  - Impaired quality of life [Unknown]
  - Gait disturbance [Recovering/Resolving]
  - Immune system disorder [Unknown]
  - Influenza [Unknown]
  - Mental impairment [Recovering/Resolving]
  - Speech disorder [Recovering/Resolving]
  - Sinusitis [Not Recovered/Not Resolved]
  - Clumsiness [Recovering/Resolving]
  - Muscular weakness [Recovering/Resolving]
  - Emotional distress [Unknown]
  - Tremor [Unknown]
  - Malaise [Unknown]
